FAERS Safety Report 9536240 (Version 1)
Quarter: 2013Q3

REPORT INFORMATION
  Report Type: Spontaneous
  Country: AU (occurrence: AU)
  Receive Date: 20130919
  Receipt Date: 20130919
  Transmission Date: 20140515
  Serious: Yes (Hospitalization)
  Sender: FDA-Public Use
  Company Number: AU-JNJFOC-20130908935

PATIENT
  Age: 3 Decade
  Sex: Male

DRUGS (2)
  1. XARELTO [Suspect]
     Indication: LOWER LIMB FRACTURE
     Route: 048
     Dates: start: 201307
  2. XARELTO [Suspect]
     Indication: EMBOLISM VENOUS
     Route: 048
     Dates: start: 201307

REACTIONS (3)
  - Loss of consciousness [Unknown]
  - Loss of consciousness [Unknown]
  - Convulsion [Unknown]
